FAERS Safety Report 24572105 (Version 5)
Quarter: 2024Q4

REPORT INFORMATION
  Report Type: Spontaneous
  Country: GB (occurrence: GB)
  Receive Date: 20241101
  Receipt Date: 20241203
  Transmission Date: 20250115
  Serious: No
  Sender: AMGEN
  Company Number: GB-AMGEN-GBRSP2024212443

PATIENT
  Age: 79 Year
  Sex: Female

DRUGS (4)
  1. IMLYGIC [Suspect]
     Active Substance: TALIMOGENE LAHERPAREPVEC
     Indication: Malignant melanoma
     Dosage: 4 MILLILITER, Q2WK
     Route: 058
     Dates: start: 20240829
  2. IMLYGIC [Suspect]
     Active Substance: TALIMOGENE LAHERPAREPVEC
     Dosage: 4 MILLILITER, Q2WK
     Route: 058
     Dates: start: 20241024
  3. AMLODIPINE [Concomitant]
     Active Substance: AMLODIPINE BESYLATE
     Indication: Product used for unknown indication
     Dosage: 10 MILLIGRAM, QD
     Route: 065
     Dates: start: 2014
  4. ATORVASTATIN [Concomitant]
     Active Substance: ATORVASTATIN
     Indication: Product used for unknown indication
     Dosage: 20 MILLIGRAM, QD
     Route: 065
     Dates: start: 2014

REACTIONS (1)
  - Herpes simplex reactivation [Unknown]

NARRATIVE: CASE EVENT DATE: 20241018
